FAERS Safety Report 20690495 (Version 1)
Quarter: 2022Q2

REPORT INFORMATION
  Report Type: Spontaneous
  Country: US (occurrence: None)
  Receive Date: 20220406
  Receipt Date: 20220406
  Transmission Date: 20220721
  Serious: Yes (Hospitalization)
  Sender: FDA-Public Use
  Company Number: None

PATIENT
  Age: 62 Year
  Sex: Female
  Weight: 79.3 kg

DRUGS (4)
  1. FLUOROURACIL [Suspect]
     Active Substance: FLUOROURACIL
     Dates: end: 20220223
  2. IRINOTECAN [Suspect]
     Active Substance: IRINOTECAN
     Dates: end: 20220223
  3. LEUCOVORIN CALCIUM [Suspect]
     Active Substance: LEUCOVORIN CALCIUM
     Dates: end: 20220223
  4. ELOXATIN [Suspect]
     Active Substance: OXALIPLATIN
     Dates: end: 20220223

REACTIONS (4)
  - Hypotension [None]
  - Acidosis [None]
  - Blood lactic acid increased [None]
  - Portal vein thrombosis [None]

NARRATIVE: CASE EVENT DATE: 20220324
